FAERS Safety Report 24543921 (Version 3)
Quarter: 2024Q4

REPORT INFORMATION
  Report Type: Spontaneous
  Country: US (occurrence: US)
  Receive Date: 20241024
  Receipt Date: 20241108
  Transmission Date: 20250115
  Serious: Yes (Hospitalization)
  Sender: CATALYST PHARMA
  Company Number: US-CATALYST PHARMACEUTICALS, INC-US-CATA-24-01203

PATIENT
  Sex: Male
  Weight: 131.52 kg

DRUGS (7)
  1. FIRDAPSE [Suspect]
     Active Substance: AMIFAMPRIDINE PHOSPHATE
     Indication: Myasthenic syndrome
     Dosage: UNKNOWN (CLINICAL TRIAL)
     Route: 048
     Dates: start: 2017, end: 2018
  2. FIRDAPSE [Suspect]
     Active Substance: AMIFAMPRIDINE PHOSPHATE
     Dosage: UNKNOWN (COMMERCIAL PRODUCT)
     Route: 048
     Dates: start: 2018
  3. FIRDAPSE [Suspect]
     Active Substance: AMIFAMPRIDINE PHOSPHATE
     Dosage: 2 TABLETS FOUR TIMES A DAY (80 MG DAILY)
     Route: 048
     Dates: start: 20190205
  4. FAMOTIDINE [Concomitant]
     Active Substance: FAMOTIDINE
     Indication: Product used for unknown indication
     Dosage: 20 MG DAILY
     Route: 065
  5. FOLIC ACID [Concomitant]
     Active Substance: FOLIC ACID
     Indication: Product used for unknown indication
     Dosage: 1 MG DAILY
     Route: 065
  6. MESTINON [Concomitant]
     Active Substance: PYRIDOSTIGMINE BROMIDE
     Indication: Product used for unknown indication
     Dosage: 60 MG FOUR TIMES A DAY
     Route: 065
  7. VITAMIN A AND VITAMIN D [Concomitant]
     Active Substance: PETROLATUM
     Indication: Product used for unknown indication
     Dosage: WEEKLY
     Route: 065

REACTIONS (3)
  - Dysarthria [Not Recovered/Not Resolved]
  - Dysphagia [Unknown]
  - Tongue disorder [Not Recovered/Not Resolved]

NARRATIVE: CASE EVENT DATE: 20240101
